FAERS Safety Report 4850090-7 (Version None)
Quarter: 2005Q4

REPORT INFORMATION
  Report Type: 
  Country: None (occurrence: None)
  Receive Date: 20051107
  Receipt Date: 20050516
  Transmission Date: 20060501
  Serious: Yes (Hospitalization, Other)
  Sender: FDA-Public Use
  Company Number: PHEH2005US05546

PATIENT
  Age: 66 Year
  Sex: Female

DRUGS (5)
  1. ESTROGEN (ESTROGENS) UNKNOWN [Suspect]
     Indication: MENOPAUSAL SYMPTOMS
     Dates: start: 19910101, end: 20010101
  2. PROGESTERONE [Suspect]
     Indication: MENOPAUSAL SYMPTOMS
     Dates: start: 19910101, end: 20010101
  3. PREMPRO [Suspect]
     Indication: MENOPAUSAL SYMPTOMS
     Dates: start: 19910101, end: 20010101
  4. PROVERA [Suspect]
     Indication: MENOPAUSAL SYMPTOMS
     Dates: start: 19910101, end: 20010101
  5. PREMARIN [Suspect]
     Indication: MENOPAUSAL SYMPTOMS
     Dates: start: 19910101, end: 20010101

REACTIONS (13)
  - ANXIETY [None]
  - BIOPSY BREAST [None]
  - BREAST CANCER IN SITU [None]
  - BREAST MASS [None]
  - EMOTIONAL DISTRESS [None]
  - INJURY [None]
  - LYMPHADENECTOMY [None]
  - MALIGNANT BREAST LUMP REMOVAL [None]
  - MAMMOGRAM ABNORMAL [None]
  - MASTECTOMY [None]
  - OESTROGEN RECEPTOR ASSAY POSITIVE [None]
  - PAIN [None]
  - PSYCHIATRIC SYMPTOM [None]
